FAERS Safety Report 20163469 (Version 4)
Quarter: 2022Q2

REPORT INFORMATION
  Report Type: Report from Study
  Country: US (occurrence: US)
  Receive Date: 20211209
  Receipt Date: 20220405
  Transmission Date: 20220721
  Serious: Yes (Other)
  Sender: FDA-Public Use
  Company Number: US-ABBVIE-21K-163-4109940-00

PATIENT
  Age: 31 Year
  Sex: Male

DRUGS (7)
  1. HUMIRA [Suspect]
     Active Substance: ADALIMUMAB
     Indication: Crohn^s disease
     Route: 058
  2. HUMIRA [Suspect]
     Active Substance: ADALIMUMAB
     Route: 058
  3. HUMIRA [Suspect]
     Active Substance: ADALIMUMAB
     Route: 058
  4. HUMIRA [Suspect]
     Active Substance: ADALIMUMAB
     Route: 058
  5. MODERNA COVID-19 VACCINE [Concomitant]
     Active Substance: ELASOMERAN
     Indication: COVID-19 immunisation
     Route: 030
     Dates: start: 20210211, end: 20210211
  6. MODERNA COVID-19 VACCINE [Concomitant]
     Active Substance: ELASOMERAN
     Route: 030
     Dates: start: 20210301, end: 20210301
  7. MODERNA COVID-19 VACCINE [Concomitant]
     Active Substance: ELASOMERAN
     Route: 030
     Dates: start: 20211101, end: 20211101

REACTIONS (12)
  - Ligament rupture [Unknown]
  - Seizure [Not Recovered/Not Resolved]
  - Foot fracture [Unknown]
  - Foot fracture [Recovering/Resolving]
  - Fall [Unknown]
  - Tendon injury [Not Recovered/Not Resolved]
  - Ulcer [Unknown]
  - Pain [Unknown]
  - COVID-19 [Unknown]
  - Vomiting [Unknown]
  - Dehydration [Unknown]
  - Tendon rupture [Unknown]

NARRATIVE: CASE EVENT DATE: 20200901
